FAERS Safety Report 15580124 (Version 1)
Quarter: 2018Q4

REPORT INFORMATION
  Report Type: Spontaneous
  Country: US (occurrence: US)
  Receive Date: 20181101
  Receipt Date: 20181101
  Transmission Date: 20190205
  Serious: No
  Sender: FDA-Public Use
  Company Number: None

PATIENT
  Age: 50 Year
  Sex: Female
  Weight: 77.56 kg

DRUGS (1)
  1. GADAVIST [Suspect]
     Active Substance: GADOBUTROL
     Indication: CONTRAST MEDIA DEPOSITION
     Route: 042
     Dates: start: 20181101, end: 20181101

REACTIONS (1)
  - Pruritus [None]

NARRATIVE: CASE EVENT DATE: 20181101
